FAERS Safety Report 12870832 (Version 1)
Quarter: 2016Q4

REPORT INFORMATION
  Report Type: Report from Study
  Country: US (occurrence: US)
  Receive Date: 20161021
  Receipt Date: 20161021
  Transmission Date: 20170207
  Serious: Yes (Death)
  Sender: FDA-Public Use
  Company Number: US-ASTRAZENECA-2016SE88544

PATIENT
  Age: 724 Month
  Sex: Female

DRUGS (6)
  1. AMOXICILLIN. [Concomitant]
     Active Substance: AMOXICILLIN
  2. CALCIUM [Concomitant]
     Active Substance: CALCIUM
  3. CITPHARM [Concomitant]
  4. TAGRISSO [Suspect]
     Active Substance: OSIMERTINIB
     Indication: LUNG CARCINOMA CELL TYPE UNSPECIFIED STAGE 0
     Route: 048
     Dates: start: 20160812
  5. FOLIC ACID. [Concomitant]
     Active Substance: FOLIC ACID
  6. CELEXA [Concomitant]
     Active Substance: CITALOPRAM HYDROBROMIDE

REACTIONS (8)
  - Death [Fatal]
  - Oral pain [Unknown]
  - Decreased appetite [Unknown]
  - Dyspnoea [Unknown]
  - Feeling abnormal [Unknown]
  - Fatigue [Unknown]
  - Cough [Unknown]
  - Dry mouth [Unknown]

NARRATIVE: CASE EVENT DATE: 201608
